FAERS Safety Report 14425781 (Version 3)
Quarter: 2020Q2

REPORT INFORMATION
  Report Type: Report from Study
  Country: US (occurrence: US)
  Receive Date: 20180123
  Receipt Date: 20200508
  Transmission Date: 20200713
  Serious: Yes (Hospitalization)
  Sender: FDA-Public Use
  Company Number: US-EISAI MEDICAL RESEARCH-EC-2017-034390

PATIENT
  Age: 56 Year
  Sex: Male
  Weight: 119.2 kg

DRUGS (18)
  1. AMLODIPINE [Concomitant]
     Active Substance: AMLODIPINE BESYLATE
  2. PHENYLEPHRIN [Concomitant]
     Active Substance: PHENYLEPHRINE HYDROCHLORIDE
  3. CALCIUM CARBONATE. [Concomitant]
     Active Substance: CALCIUM CARBONATE
  4. FAMOTIDINE. [Concomitant]
     Active Substance: FAMOTIDINE
  5. GUAIFENESIN. [Concomitant]
     Active Substance: GUAIFENESIN
  6. LEVOTHYROXINE. [Concomitant]
     Active Substance: LEVOTHYROXINE
  7. ENOXAPARIN [Concomitant]
     Active Substance: ENOXAPARIN
  8. CETRIZINE [Concomitant]
     Active Substance: CETIRIZINE HYDROCHLORIDE
  9. LACTOBACILLUS/STREPTOCOCCUS [Concomitant]
  10. ALPRAZOLAM. [Concomitant]
     Active Substance: ALPRAZOLAM
  11. LISINOPRIL. [Concomitant]
     Active Substance: LISINOPRIL
  12. DABRAFENIB [Concomitant]
     Active Substance: DABRAFENIB
  13. LENVATINIB [Suspect]
     Active Substance: LENVATINIB
     Indication: PAPILLARY THYROID CANCER
     Route: 048
     Dates: start: 20170831
  14. ATORVASTATIN [Concomitant]
     Active Substance: ATORVASTATIN
  15. FLUTICASONE. [Concomitant]
     Active Substance: FLUTICASONE
  16. LORATADINE. [Concomitant]
     Active Substance: LORATADINE
  17. OXYCODONE-ACETAMINOPHEN [Concomitant]
     Active Substance: ACETAMINOPHEN\OXYCODONE HYDROCHLORIDE
  18. HCTZ [Concomitant]
     Active Substance: HYDROCHLOROTHIAZIDE

REACTIONS (3)
  - Syncope [Recovered/Resolved]
  - Pancreatitis [Recovered/Resolved]
  - Sepsis [Recovered/Resolved]

NARRATIVE: CASE EVENT DATE: 20171218
